FAERS Safety Report 11607802 (Version 3)
Quarter: 2015Q4

REPORT INFORMATION
  Report Type: Report from Study
  Country: US (occurrence: US)
  Receive Date: 20151007
  Receipt Date: 20151119
  Transmission Date: 20160304
  Serious: Yes (Other)
  Sender: FDA-Public Use
  Company Number: US-JNJFOC-20150926957

PATIENT
  Age: 63 Year
  Sex: Male
  Weight: 65.77 kg

DRUGS (3)
  1. REMICADE [Suspect]
     Active Substance: INFLIXIMAB
     Indication: COLITIS ULCERATIVE
     Route: 042
  2. ALLEGRA [Concomitant]
     Active Substance: FEXOFENADINE HYDROCHLORIDE
     Indication: MULTIPLE ALLERGIES
     Dosage: DAILY
     Route: 065
  3. COLAZAL [Concomitant]
     Active Substance: BALSALAZIDE DISODIUM
     Dosage: DAILY
     Route: 065

REACTIONS (11)
  - Blood iron abnormal [Recovered/Resolved]
  - Small intestinal haemorrhage [Unknown]
  - Nausea [Recovered/Resolved]
  - Oral infection [Recovered/Resolved]
  - Diarrhoea [Recovered/Resolved]
  - Device issue [Not Recovered/Not Resolved]
  - Arthralgia [Not Recovered/Not Resolved]
  - Oral pain [Recovered/Resolved]
  - Coeliac disease [Not Recovered/Not Resolved]
  - Abscess oral [Recovered/Resolved]
  - Denture wearer [Unknown]

NARRATIVE: CASE EVENT DATE: 2014
